FAERS Safety Report 14441383 (Version 3)
Quarter: 2018Q2

REPORT INFORMATION
  Report Type: Report from Study
  Country: US (occurrence: US)
  Receive Date: 20180125
  Receipt Date: 20180413
  Transmission Date: 20180711
  Serious: Yes (Hospitalization)
  Sender: FDA-Public Use
  Company Number: US-JNJFOC-20171117752

PATIENT
  Age: 79 Year
  Sex: Male

DRUGS (18)
  1. NORVASC [Concomitant]
     Active Substance: AMLODIPINE BESYLATE
  2. PREDNISONE. [Concomitant]
     Active Substance: PREDNISONE
  3. ROBITUSSIN (GUAIFENESIN) [Concomitant]
     Active Substance: GUAIFENESIN
  4. SYNTHROID [Concomitant]
     Active Substance: LEVOTHYROXINE SODIUM
  5. ALLOPURINOL. [Concomitant]
     Active Substance: ALLOPURINOL
  6. FERREX [Concomitant]
     Active Substance: FERRIC POLYSACCHARIDE COMPLEX
  7. METOPROLOL TARTRATE. [Concomitant]
     Active Substance: METOPROLOL TARTRATE
  8. IMBRUVICA [Suspect]
     Active Substance: IBRUTINIB
     Indication: CHRONIC LYMPHOCYTIC LEUKAEMIA
     Route: 048
     Dates: start: 20171107, end: 20171213
  9. FISH OIL [Concomitant]
     Active Substance: FISH OIL
  10. AZITHROMYCIN ANHYDROUS. [Concomitant]
     Active Substance: AZITHROMYCIN ANHYDROUS
  11. HEPARIN [Suspect]
     Active Substance: HEPARIN SODIUM
     Indication: PULMONARY OEDEMA
     Route: 042
  12. LABETALOL [Concomitant]
     Active Substance: LABETALOL\LABETALOL HYDROCHLORIDE
  13. CYANOCOBALAMIN. [Concomitant]
     Active Substance: CYANOCOBALAMIN
  14. IRON [Concomitant]
     Active Substance: IRON
  15. IPRATROPIUM BROMIDE W/SALBUTAMOL SULFATE [Concomitant]
  16. SIMVASTATIN. [Concomitant]
     Active Substance: SIMVASTATIN
  17. HYDRALAZINE [Concomitant]
     Active Substance: HYDRALAZINE HYDROCHLORIDE
  18. FOLIC ACID. [Concomitant]
     Active Substance: FOLIC ACID

REACTIONS (19)
  - Metabolic acidosis [Unknown]
  - Haemorrhage [Unknown]
  - Platelet count decreased [Not Recovered/Not Resolved]
  - Respiratory failure [Unknown]
  - Bundle branch block left [Unknown]
  - Orthostatic hypotension [Unknown]
  - Bronchitis [Unknown]
  - Contusion [Not Recovered/Not Resolved]
  - Cardiac failure [Unknown]
  - Pneumonia [Recovered/Resolved with Sequelae]
  - Acute pulmonary oedema [Unknown]
  - Atrial fibrillation [Unknown]
  - Rash [Recovered/Resolved]
  - Constipation [Not Recovered/Not Resolved]
  - Blood uric acid increased [Not Recovered/Not Resolved]
  - Hypertensive crisis [Unknown]
  - Dermatitis [Unknown]
  - Leukocytosis [Unknown]
  - Gastrooesophageal reflux disease [Unknown]

NARRATIVE: CASE EVENT DATE: 20171208
